FAERS Safety Report 21995055 (Version 3)
Quarter: 2023Q1

REPORT INFORMATION
  Report Type: Spontaneous
  Country: CZ (occurrence: CZ)
  Receive Date: 20230215
  Receipt Date: 20230317
  Transmission Date: 20230418
  Serious: Yes (Hospitalization, Other)
  Sender: FDA-Public Use
  Company Number: CZ-GRINDPROD-2023002343

PATIENT
  Age: 38 Year
  Sex: Male

DRUGS (17)
  1. MORPHINE SULFATE [Suspect]
     Active Substance: MORPHINE SULFATE
     Indication: Analgesic therapy
     Dosage: 10 MG S.C. AS NEEDED, A MAXIMUM OF 6 TIMES A DAY WITH A MINIMUM INTERVAL OF 4 HOURS, PROBABLY APPLIE
     Route: 058
  2. MORPHINE SULFATE [Suspect]
     Active Substance: MORPHINE SULFATE
     Dosage: UNKMAXIMUM 6X DAILY WITH MINIMAL INTERVALS 4 HOURS
     Route: 065
  3. MORPHINE SULFATE [Suspect]
     Active Substance: MORPHINE SULFATE
     Dosage: 20 MILLIGRAM, DAILY
     Route: 058
  4. DIAZEPAM [Suspect]
     Active Substance: DIAZEPAM
     Indication: Restlessness
     Dosage: 10 MG I.V. IN CASE OF SIGNIFICANT RESTLESSNESS, CAN BE REPEATED AFTER 4 HOURS
     Route: 042
  5. DIAZEPAM [Suspect]
     Active Substance: DIAZEPAM
     Indication: Restlessness
     Dosage: 10 MILLIGRAM (WITH SIGNIFICANT RESTLESSNESS, CAN BE APPLIED AGAIN AFTER 4 HOURS)
     Route: 042
  6. ESCITALOPRAM [Suspect]
     Active Substance: ESCITALOPRAM OXALATE
     Indication: Product used for unknown indication
     Dosage: 20 MILLIGRAM, DAILY
     Route: 048
  7. ESCITALOPRAM [Suspect]
     Active Substance: ESCITALOPRAM OXALATE
     Dosage: 20 MG, QD,ONCE DAILY IN THE MORNING
     Route: 065
  8. FENTANYL [Suspect]
     Active Substance: FENTANYL
     Indication: Analgesic therapy
     Dosage: 300 ?G/H EVERY 3 DAYS
     Route: 062
  9. FENTANYL [Suspect]
     Active Substance: FENTANYL
     Indication: Back pain
     Dosage: 300 MICROGRAM PER HOUR A 3 DAYS
     Route: 062
  10. FENTANYL [Suspect]
     Active Substance: FENTANYL
     Indication: Back pain
     Dosage: 250 MICROGRAM PER HOUR
     Route: 062
  11. FENTANYL [Suspect]
     Active Substance: FENTANYL
     Indication: Adenocarcinoma gastric
     Dosage: 200 MICROGRAM PER HOUR A 3 DAYS
     Route: 062
  12. FENTANYL [Suspect]
     Active Substance: FENTANYL
     Dosage: 200 MICROGRAM, QH
     Route: 062
  13. FENTANYL [Suspect]
     Active Substance: FENTANYL
     Dosage: 250 MICROGRAM, QH
     Route: 062
  14. FENTANYL [Suspect]
     Active Substance: FENTANYL
     Dosage: 300?G,QH ,100?GDAILY,EACH 3DAY TRANSDERMALLY
     Route: 062
  15. LACTULOSE [Concomitant]
     Active Substance: LACTULOSE
     Indication: Product used for unknown indication
     Dosage: 15 ML 3 TIMES A DAY
  16. LACTULOSE [Concomitant]
     Active Substance: LACTULOSE
     Dosage: 45 MILLILITER, QD (15 ML, TID)
     Route: 048
  17. LACTULOSE [Concomitant]
     Active Substance: LACTULOSE
     Dosage: 45 MILLILITER, QD (15 ML, TID)

REACTIONS (21)
  - Depressed level of consciousness [Recovered/Resolved]
  - Hyperaesthesia [Recovered/Resolved]
  - Drug dependence [Recovered/Resolved]
  - Drug withdrawal syndrome [Recovered/Resolved]
  - Coma [Recovered/Resolved]
  - Drug dependence [Unknown]
  - Intentional product misuse [Unknown]
  - Withdrawal syndrome [Recovering/Resolving]
  - Somnolence [Recovered/Resolved]
  - Altered state of consciousness [Recovered/Resolved]
  - Sopor [Recovered/Resolved]
  - Drug abuse [Recovered/Resolved]
  - Constipation [Recovered/Resolved]
  - Restlessness [Recovered/Resolved]
  - Headache [Recovered/Resolved]
  - Neck pain [Recovered/Resolved]
  - Wrong technique in product usage process [Unknown]
  - Incorrect route of product administration [Unknown]
  - Eating disorder [Recovered/Resolved]
  - Thirst decreased [Recovered/Resolved]
  - Psychomotor hyperactivity [Recovered/Resolved]
